FAERS Safety Report 20975706 (Version 3)
Quarter: 2022Q3

REPORT INFORMATION
  Report Type: Spontaneous
  Country: US (occurrence: US)
  Receive Date: 20220617
  Receipt Date: 20220720
  Transmission Date: 20221027
  Serious: No
  Sender: FDA-Public Use
  Company Number: US-PFIZER INC-202200845472

PATIENT
  Sex: Female

DRUGS (1)
  1. VIAGRA [Suspect]
     Active Substance: SILDENAFIL CITRATE
     Dosage: UNK

REACTIONS (6)
  - Cardiovascular disorder [Unknown]
  - Asthenia [Unknown]
  - Depressed mood [Unknown]
  - Disturbance in sexual arousal [Unknown]
  - Off label use [Unknown]
  - Product use issue [Unknown]
